FAERS Safety Report 9511581 (Version 2)
Quarter: 2013Q3

REPORT INFORMATION
  Report Type: Report from Study
  Country: BR (occurrence: BR)
  Receive Date: 20130910
  Receipt Date: 20130912
  Transmission Date: 20140515
  Serious: Yes (Other)
  Sender: FDA-Public Use
  Company Number: PHHY2013BR098552

PATIENT
  Sex: Female
  Weight: 57 kg

DRUGS (3)
  1. FORASEQ [Suspect]
     Indication: DYSPNOEA
     Dosage: 1 DF, (12/200 MCG DAILY)
  2. FORASEQ [Suspect]
     Dosage: 1 DF, (12/400 UG, ONCE PER DAY)
  3. FORASEQ [Suspect]
     Dosage: 1 DF, (12/400 UG, ONCE PER DAY)
     Dates: start: 20130901

REACTIONS (6)
  - Dermatitis [Recovering/Resolving]
  - Candida infection [Recovering/Resolving]
  - Plicated tongue [Recovering/Resolving]
  - Tongue discolouration [Recovering/Resolving]
  - Tongue pigmentation [Unknown]
  - Incorrect dose administered [Unknown]
